FAERS Safety Report 7305184-3 (Version None)
Quarter: 2011Q1

REPORT INFORMATION
  Report Type: 
  Country: None (occurrence: None)
  Receive Date: 20110222
  Receipt Date: 20110217
  Transmission Date: 20110831
  Serious: Yes (Hospitalization, Other)
  Sender: FDA-Public Use
  Company Number: US-PFIZER INC-2010157025

PATIENT
  Sex: Male

DRUGS (6)
  1. IBUPROFEN [Concomitant]
     Indication: PAIN
     Dosage: UNK
     Dates: start: 20060101, end: 20090101
  2. OXYCODONE HCL AND ACETAMINOPHEN [Concomitant]
     Indication: PAIN
     Dosage: UNK
     Dates: start: 20070101, end: 20100101
  3. CHANTIX [Suspect]
     Indication: SMOKING CESSATION THERAPY
     Dosage: STARTER AND CONTINUING MONTH PACK
     Dates: start: 20081125, end: 20090601
  4. OXYCODONE [Concomitant]
     Indication: PAIN
     Dosage: UNK
     Dates: start: 20060101, end: 20100101
  5. CHANTIX [Suspect]
     Dosage: CONTINUING MONTH PACK
     Dates: start: 20090619, end: 20090901
  6. BENICAR [Concomitant]
     Indication: HYPERTENSION
     Dosage: UNK
     Dates: start: 20070101, end: 20090101

REACTIONS (5)
  - POST-TRAUMATIC STRESS DISORDER [None]
  - AGGRESSION [None]
  - ANXIETY [None]
  - ANGER [None]
  - DEPRESSION [None]
